FAERS Safety Report 23607420 (Version 2)
Quarter: 2024Q1

REPORT INFORMATION
  Report Type: Spontaneous
  Country: US (occurrence: US)
  Receive Date: 20240307
  Receipt Date: 20240318
  Transmission Date: 20240410
  Serious: Yes (Hospitalization, Other)
  Sender: FDA-Public Use
  Company Number: US-PFIZER INC-PV202400030792

PATIENT
  Age: 77 Year
  Sex: Male
  Weight: 77.89 kg

DRUGS (4)
  1. CLINDAMYCIN HYDROCHLORIDE [Suspect]
     Active Substance: CLINDAMYCIN HYDROCHLORIDE
     Dosage: UNK
  2. JAKAFI [Suspect]
     Active Substance: RUXOLITINIB
     Dosage: UNK
     Dates: end: 20240126
  3. ANAGRELIDE [Concomitant]
     Active Substance: ANAGRELIDE
     Dosage: 1MG AM AND PM
  4. MOMELOTINIB [Concomitant]
     Active Substance: MOMELOTINIB
     Dosage: UNK
     Dates: start: 20240111

REACTIONS (11)
  - Gastrooesophageal reflux disease [Unknown]
  - Colitis [Unknown]
  - Abdominal pain upper [Unknown]
  - White blood cell count decreased [Unknown]
  - Haemoglobin abnormal [Unknown]
  - Blood pressure decreased [Unknown]
  - Sinus disorder [Unknown]
  - Vision blurred [Unknown]
  - Nausea [Unknown]
  - Headache [Unknown]
  - Platelet count decreased [Unknown]
